FAERS Safety Report 4364829-0 (Version None)
Quarter: 2004Q2

REPORT INFORMATION
  Report Type: 
  Country: None (occurrence: None)
  Receive Date: 20040526
  Receipt Date: 20040317
  Transmission Date: 20050107
  Serious: No
  Sender: FDA-Public Use
  Company Number: US-GLAXOSMITHKLINE-A0503736A

PATIENT
  Age: 38 Year
  Sex: Female

DRUGS (3)
  1. LOTRONEX [Suspect]
     Route: 048
     Dates: start: 20000411
  2. NORVASC [Concomitant]
  3. QUESTRAN [Concomitant]

REACTIONS (1)
  - DRUG INEFFECTIVE [None]
